FAERS Safety Report 8588061-X (Version None)
Quarter: 2012Q3

REPORT INFORMATION
  Report Type: 
  Country: None (occurrence: None)
  Receive Date: 20120813
  Receipt Date: 20120808
  Transmission Date: 20120928
  Serious: No
  Sender: FDA-Public Use
  Company Number: US-PFIZER INC-2012193878

PATIENT
  Age: 98 Year
  Sex: Female
  Weight: 48.073 kg

DRUGS (12)
  1. CARVEDILOL [Concomitant]
     Indication: HEART INJURY
     Dosage: 12.5 MG, 2X/DAY
     Dates: start: 20070501
  2. ASPIRIN [Concomitant]
     Dosage: 81 MG, 1X/DAY
  3. NASONEX [Concomitant]
     Indication: SEASONAL ALLERGY
     Dosage: TWO SPRAYS, 1X/DAY
  4. FISH OIL [Concomitant]
     Dosage: 1000 MG, 1X/DAY
  5. LUTEIN [Concomitant]
     Dosage: 20 MG, 1X/DAY
  6. MAGNESIUM OXIDE [Concomitant]
     Dosage: 400 MG, 1X/DAY
  7. COLESTIPOL HYDROCHLORIDE [Suspect]
     Indication: ABDOMINAL DISCOMFORT
     Dosage: 1 G, 2X/DAY
     Route: 048
     Dates: start: 19920125
  8. IRON [Concomitant]
     Dosage: 60 MEQ, 1X/DAY
  9. COLESTIPOL HYDROCHLORIDE [Suspect]
     Indication: DIARRHOEA
  10. CALCIUM CITRATE [Concomitant]
     Dosage: 1000 MG, 1X/DAY
  11. MULTI-VITAMINS [Concomitant]
     Dosage: UNK, 1X/DAY
  12. TYLENOL [Concomitant]
     Dosage: 500 MG, 1X/DAY

REACTIONS (3)
  - ARTHRITIS [None]
  - ASTHMA [None]
  - BLOOD CHOLESTEROL INCREASED [None]
